FAERS Safety Report 7055920-9 (Version None)
Quarter: 2010Q4

REPORT INFORMATION
  Report Type: 
  Country: None (occurrence: None)
  Receive Date: 20101021
  Receipt Date: 20101015
  Transmission Date: 20110411
  Serious: Yes (Hospitalization)
  Sender: FDA-Public Use
  Company Number: A0764358A

PATIENT
  Age: 44 Year
  Sex: Male
  Weight: 115.9 kg

DRUGS (4)
  1. AVANDIA [Suspect]
     Dosage: 4MG TWICE PER DAY
     Route: 048
     Dates: start: 20040701, end: 20070713
  2. AVANDAMET [Suspect]
     Route: 048
  3. ZOCOR [Concomitant]
  4. ZIAC [Concomitant]

REACTIONS (1)
  - CEREBROVASCULAR ACCIDENT [None]
